FAERS Safety Report 17281661 (Version 1)
Quarter: 2020Q1

REPORT INFORMATION
  Report Type: Spontaneous
  Country: US (occurrence: US)
  Receive Date: 20200117
  Receipt Date: 20200117
  Transmission Date: 20200409
  Serious: No
  Sender: FDA-Public Use
  Company Number: US-GLAXOSMITHKLINE-US2020AMR006146

PATIENT
  Sex: Male

DRUGS (1)
  1. ANORO ELLIPTA [Suspect]
     Active Substance: UMECLIDINIUM BROMIDE\VILANTEROL TRIFENATATE
     Indication: PRODUCT USED FOR UNKNOWN INDICATION
     Dosage: UNK
     Route: 065
     Dates: start: 201903

REACTIONS (8)
  - Diarrhoea [Unknown]
  - Cough [Unknown]
  - Influenza [Unknown]
  - Oropharyngeal pain [Unknown]
  - Sneezing [Unknown]
  - Respiratory tract congestion [Unknown]
  - Headache [Unknown]
  - Rhinorrhoea [Unknown]
